FAERS Safety Report 21277890 (Version 1)
Quarter: 2022Q3

REPORT INFORMATION
  Report Type: Spontaneous
  Country: US (occurrence: US)
  Receive Date: 20220831
  Receipt Date: 20220831
  Transmission Date: 20221027
  Serious: No
  Sender: FDA-Public Use
  Company Number: US-ABBVIE-22K-163-4267528-00

PATIENT

DRUGS (1)
  1. HUMIRA [Suspect]
     Active Substance: ADALIMUMAB
     Indication: Psoriasis
     Route: 058

REACTIONS (11)
  - SARS-CoV-2 test positive [Unknown]
  - Anosmia [Unknown]
  - Fatigue [Unknown]
  - Fear [Unknown]
  - Immunodeficiency [Unknown]
  - Cough [Unknown]
  - Ageusia [Unknown]
  - Palpitations [Unknown]
  - Hypertension [Unknown]
  - Illness [Unknown]
  - Oropharyngeal pain [Unknown]

NARRATIVE: CASE EVENT DATE: 20220114
